FAERS Safety Report 13598571 (Version 1)
Quarter: 2017Q2

REPORT INFORMATION
  Report Type: Spontaneous
  Country: US (occurrence: US)
  Receive Date: 20170531
  Receipt Date: 20170531
  Transmission Date: 20170830
  Serious: Yes (Life-Threatening, Hospitalization)
  Sender: FDA-Public Use
  Company Number: None

PATIENT
  Age: 83 Year
  Sex: Male

DRUGS (1)
  1. SULFAMETHOXAZOLE-TMP DS 800-160MG AUROBINDO PHA [Suspect]
     Active Substance: SULFAMETHOXAZOLE\TRIMETHOPRIM
     Indication: LOCALISED INFECTION
     Route: 048
     Dates: start: 20170519, end: 20170524

REACTIONS (6)
  - Platelet count decreased [None]
  - Chills [None]
  - Musculoskeletal disorder [None]
  - Abdominal pain [None]
  - Asthenia [None]
  - Acute kidney injury [None]

NARRATIVE: CASE EVENT DATE: 20170524
